FAERS Safety Report 19646035 (Version 2)
Quarter: 2023Q2

REPORT INFORMATION
  Report Type: Spontaneous
  Country: US (occurrence: US)
  Receive Date: 20210802
  Receipt Date: 20230619
  Transmission Date: 20230722
  Serious: Yes (Life-Threatening, Hospitalization, Other)
  Sender: FDA-Public Use
  Company Number: US-MLMSERVICE-20210716-3002982-1

PATIENT
  Age: 22 Year
  Sex: Female

DRUGS (1)
  1. LAMOTRIGINE [Suspect]
     Active Substance: LAMOTRIGINE
     Indication: Bipolar disorder
     Dosage: UNKNOWN
     Route: 065

REACTIONS (4)
  - Photosensitivity reaction [Recovering/Resolving]
  - Dysphagia [Unknown]
  - Toxic epidermal necrolysis [Recovering/Resolving]
  - Dysuria [Unknown]
